FAERS Safety Report 7417114-4 (Version None)
Quarter: 2011Q2

REPORT INFORMATION
  Report Type: 
  Country: None (occurrence: None)
  Receive Date: 20110415
  Receipt Date: 20110204
  Transmission Date: 20111010
  Serious: No
  Sender: FDA-Public Use
  Company Number: US-B.I. PHARMACEUTICALS,INC./RIDGEFIELD-2011-BP-03769BP

PATIENT
  Age: 85 Year
  Sex: Female

DRUGS (4)
  1. PRADAXA [Suspect]
     Indication: ATRIAL FIBRILLATION
     Dosage: 150 MG
     Route: 048
     Dates: start: 20110101
  2. SYNTHROID [Concomitant]
     Indication: THYROID DISORDER
  3. DIOVAN [Concomitant]
     Indication: HYPERTENSION
  4. PROCARDIA [Concomitant]
     Indication: HYPERTENSION

REACTIONS (7)
  - NECK INJURY [None]
  - FALL [None]
  - NECK PAIN [None]
  - HEAD INJURY [None]
  - BALANCE DISORDER [None]
  - FATIGUE [None]
  - CONTUSION [None]
